FAERS Safety Report 5854868-2 (Version None)
Quarter: 2008Q3

REPORT INFORMATION
  Report Type: 
  Country: None (occurrence: None)
  Receive Date: 20080822
  Receipt Date: 20080212
  Transmission Date: 20090109
  Serious: No
  Sender: FDA-Public Use
  Company Number: US-ABBOTT-08P-163-0438310-00

PATIENT
  Sex: Male
  Weight: 104.42 kg

DRUGS (4)
  1. SYNTHROID [Suspect]
     Indication: HYPOTHYROIDISM
     Route: 048
     Dates: start: 20060101, end: 20080201
  2. SYNTHROID [Suspect]
     Route: 048
     Dates: start: 20000101, end: 20060101
  3. SYNTHROID [Suspect]
     Route: 048
     Dates: start: 20080201
  4. OLMESARTAN MEDOXOMIL [Concomitant]
     Indication: HYPERTENSION
     Route: 048
     Dates: start: 20080201

REACTIONS (2)
  - PRURITUS GENERALISED [None]
  - RASH GENERALISED [None]
